FAERS Safety Report 10246223 (Version 2)
Quarter: 2014Q2

REPORT INFORMATION
  Report Type: Report from Study
  Country: US (occurrence: US)
  Receive Date: 20140619
  Receipt Date: 20140619
  Transmission Date: 20141212
  Serious: Yes (Hospitalization)
  Sender: FDA-Public Use
  Company Number: PHEH2014US010236

PATIENT
  Age: 56 Year
  Sex: Male
  Weight: 91 kg

DRUGS (9)
  1. BASILIXIMAB [Suspect]
     Indication: RENAL TRANSPLANT
     Dosage: 20 MG, EVERY 3 DAYS
     Route: 042
     Dates: start: 20130507, end: 20130510
  2. BASILIXIMAB [Suspect]
     Indication: IMMUNOSUPPRESSION
  3. TACROLIMUS [Suspect]
     Indication: RENAL TRANSPLANT
     Dosage: 1 MG, BID
     Route: 048
     Dates: start: 20130507
  4. TACROLIMUS [Suspect]
     Indication: IMMUNOSUPPRESSION
     Dosage: 0.5 UNK, UNK
     Route: 048
     Dates: start: 20140410, end: 20140411
  5. TACROLIMUS [Suspect]
     Dosage: 0.5 MG, QD
     Route: 048
     Dates: start: 20140412
  6. TACROLIMUS [Suspect]
     Dosage: 2.5 MG, QD
     Route: 048
     Dates: start: 20140412
  7. ACYCLOVIR [Concomitant]
     Dosage: UNK UKN, UNK
     Dates: start: 20140331, end: 20140405
  8. VALCYTE [Concomitant]
     Dosage: UNK UKN, UNK
     Dates: start: 20140305, end: 20140331
  9. IVIGLOB-EX [Concomitant]
     Dosage: UNK UKN, UNK
     Route: 042
     Dates: start: 20140327, end: 20140327

REACTIONS (7)
  - Dysphagia [Recovered/Resolved]
  - Cytomegalovirus infection [Unknown]
  - Mucosal inflammation [Recovered/Resolved with Sequelae]
  - Tongue ulceration [Unknown]
  - Mouth ulceration [Recovering/Resolving]
  - Pyrexia [Unknown]
  - Pain [Unknown]
